FAERS Safety Report 7029098-1 (Version None)
Quarter: 2010Q4

REPORT INFORMATION
  Report Type: 
  Country: None (occurrence: None)
  Receive Date: 20101005
  Receipt Date: 20100928
  Transmission Date: 20110411
  Serious: Yes (Other)
  Sender: FDA-Public Use
  Company Number: B0677718A

PATIENT
  Sex: Male

DRUGS (3)
  1. LAMICTAL [Suspect]
     Indication: EPILEPSY
     Route: 048
     Dates: start: 20100911, end: 20100920
  2. LEXAPRO [Concomitant]
     Indication: DEPRESSION
     Route: 065
     Dates: start: 20100911, end: 20100924
  3. CIPRAMIL [Concomitant]
     Indication: DEPRESSION
     Route: 065
     Dates: start: 20100925

REACTIONS (11)
  - ALANINE AMINOTRANSFERASE INCREASED [None]
  - ASPARTATE AMINOTRANSFERASE INCREASED [None]
  - CHAPPED LIPS [None]
  - ECZEMA [None]
  - LIP HAEMORRHAGE [None]
  - LIP PAIN [None]
  - LIP SWELLING [None]
  - LIVER FUNCTION TEST ABNORMAL [None]
  - MONOCYTE COUNT INCREASED [None]
  - PRURITUS [None]
  - RASH [None]
